FAERS Safety Report 18435466 (Version 3)
Quarter: 2021Q3

REPORT INFORMATION
  Report Type: Spontaneous
  Country: PK (occurrence: PK)
  Receive Date: 20201027
  Receipt Date: 20210710
  Transmission Date: 20211014
  Serious: Yes (Other)
  Sender: FDA-Public Use
  Company Number: PK-AMGEN-PAKSP2019182399

PATIENT
  Age: 24 Year
  Sex: Female
  Weight: 67 kg

DRUGS (19)
  1. AVELOX [Concomitant]
     Active Substance: MOXIFLOXACIN HYDROCHLORIDE
     Dosage: 50 MG, 1X/DAY
  2. NEOGAB [Concomitant]
     Dosage: 300 MG
  3. ZOLOFT [Concomitant]
     Active Substance: SERTRALINE HYDROCHLORIDE
     Dosage: 100 MG, DAILY
     Route: 065
  4. FOLIC ACID. [Concomitant]
     Active Substance: FOLIC ACID
     Dosage: 5 MG, DAILY
  5. DELTACORTRIL [Concomitant]
     Active Substance: PREDNISOLONE
     Dosage: 2.5MG ON ALTERNATE DAYS
  6. VOLTRAL [DICLOFENAC DIETHYLAMINE] [Concomitant]
     Indication: PAIN
     Dosage: TAKE 1 TABLET IN MORNING AND 1 IN EVENING AFTER MEAL, AS PER NEEDED
  7. ZOLOFT [Concomitant]
     Active Substance: SERTRALINE HYDROCHLORIDE
     Dosage: 50MG 1+1
  8. HCQ [Concomitant]
     Active Substance: HYDROXYCHLOROQUINE SULFATE
     Dosage: 200 MG, 2X/DAY
  9. HCQ [Concomitant]
     Active Substance: HYDROXYCHLOROQUINE SULFATE
     Dosage: 1+1,AFTER MEAL, TAKE 1 TABLET IN MORNING AND 1 IN NIGHT AFTER MEAL
  10. CAC [Concomitant]
     Dosage: UNK UNK, QD (CAC 1000 PLCS DAILY)
  11. DELTACORTRIL [Concomitant]
     Active Substance: PREDNISOLONE
     Dosage: 5 MG, ONCE EVERY THIRD DAY
  12. ENBREL [Suspect]
     Active Substance: ETANERCEPT
     Indication: RHEUMATOID ARTHRITIS
     Dosage: 50 MG, WEEKLY
     Route: 058
     Dates: start: 201811
  13. ENBREL [Suspect]
     Active Substance: ETANERCEPT
     Dosage: EVERY 10TH DAY
     Route: 065
     Dates: start: 202101
  14. LOSEC [Concomitant]
     Active Substance: OMEPRAZOLE
     Dosage: 20 MG, 1X/DAY (20 MG BEFORE BREAKFAST)
  15. HCQ [Concomitant]
     Active Substance: HYDROXYCHLOROQUINE SULFATE
     Dosage: 200 MG, UNK (200 MG 1+1)
  16. DELTACORTRIL [Concomitant]
     Active Substance: PREDNISOLONE
     Dosage: 5 MG, ONCE EVERY THIRD DAY
  17. CAC [Concomitant]
     Dosage: 1 DF, 1X/DAY
  18. MTX [METHOTREXATE SODIUM] [Concomitant]
     Active Substance: METHOTREXATE SODIUM
     Dosage: UNK
     Dates: start: 201804, end: 201812
  19. SULFASALAZINE. [Concomitant]
     Active Substance: SULFASALAZINE
     Dosage: 2+2, AFTER MEAL, TAKE 2 TABLET IN MORNING, 2 IN EVENING AFTER MEAL

REACTIONS (11)
  - Mood swings [Unknown]
  - Pain in extremity [Unknown]
  - Sleep disorder [Unknown]
  - Dry mouth [Unknown]
  - COVID-19 [Recovered/Resolved]
  - Skin discolouration [Recovering/Resolving]
  - Dizziness [Unknown]
  - Arthralgia [Unknown]
  - Epicondylitis [Unknown]
  - Neck pain [Unknown]
  - Off label use [Unknown]

NARRATIVE: CASE EVENT DATE: 202007
